FAERS Safety Report 22143220 (Version 1)
Quarter: 2023Q1

REPORT INFORMATION
  Report Type: Report from Study
  Country: US (occurrence: US)
  Receive Date: 20230327
  Receipt Date: 20230327
  Transmission Date: 20230418
  Serious: Yes (Hospitalization)
  Sender: FDA-Public Use
  Company Number: US-REGENERON PHARMACEUTICALS, INC.-2023-044814

PATIENT
  Age: 59 Year
  Sex: Female

DRUGS (18)
  1. FIANLIMAB [Suspect]
     Active Substance: FIANLIMAB
     Indication: Malignant melanoma
     Dosage: 1600 MG, Q3W
     Route: 042
     Dates: start: 20210713, end: 20230224
  2. CEMIPLIMAB [Suspect]
     Active Substance: CEMIPLIMAB
     Indication: Malignant melanoma
     Dosage: 350 MG, Q3W
     Route: 042
     Dates: start: 20210713, end: 20230224
  3. PREGABALIN [Concomitant]
     Active Substance: PREGABALIN
     Indication: Diabetic neuropathy
     Dosage: 75 MG, QD
     Route: 048
     Dates: start: 2019
  4. INSULIN NOS [Concomitant]
     Active Substance: INSULIN NOS
     Indication: Type 2 diabetes mellitus
     Dosage: 42 [IU], QD
     Route: 058
     Dates: start: 2005
  5. INSULIN NOS [Concomitant]
     Active Substance: INSULIN NOS
     Dosage: 30 [IU], QD
     Route: 058
     Dates: start: 2005
  6. ISOPHANE INSULIN [Concomitant]
     Active Substance: INSULIN NOS
     Indication: Type 2 diabetes mellitus
     Dosage: 70 [IU]
     Route: 058
     Dates: start: 2005
  7. ISOPHANE INSULIN [Concomitant]
     Active Substance: INSULIN NOS
     Dosage: 50 [IU]
     Route: 058
     Dates: start: 2005
  8. CODEINE [Concomitant]
     Active Substance: CODEINE
     Indication: Cough
     Dosage: UNK, AS NECESSARY
     Route: 048
  9. VENLAFAXINE HYDROCHLORIDE [Concomitant]
     Active Substance: VENLAFAXINE HYDROCHLORIDE
     Indication: Depression
     Dosage: 450 MG
     Route: 048
     Dates: start: 2010
  10. LIDOCAINE [Concomitant]
     Active Substance: LIDOCAINE
     Indication: Neuralgia
     Dosage: UNK
     Dates: start: 2021
  11. ARIPIPRAZOLE [Concomitant]
     Active Substance: ARIPIPRAZOLE
     Indication: Depression
     Dosage: UNK, QD
     Route: 048
     Dates: start: 2016
  12. TROPINE BENZYLATE [Concomitant]
     Active Substance: TROPINE BENZYLATE
     Indication: Depression
     Dosage: UNK, QD
     Route: 048
     Dates: start: 2016
  13. LOSARTAN [Concomitant]
     Active Substance: LOSARTAN
     Indication: Hypertension
     Dosage: 100 MG, QD
     Route: 048
     Dates: start: 2019
  14. MIRTAZAPINE [Concomitant]
     Active Substance: MIRTAZAPINE
     Indication: Depression
     Dosage: 45 MG, QD
     Route: 048
     Dates: start: 2016
  15. SIMVASTATIN [Concomitant]
     Active Substance: SIMVASTATIN
     Indication: Hyperlipidaemia
     Dosage: 20 MG
     Route: 048
     Dates: start: 2016
  16. ASENAPINE [Concomitant]
     Active Substance: ASENAPINE
     Indication: Depression
     Dosage: 2.5 MG
     Route: 048
     Dates: start: 2016
  17. OMEGA 3 EPA [Concomitant]
     Indication: Supplementation therapy
     Dosage: UNK
     Route: 048
     Dates: start: 2019
  18. BENZONATATE [Concomitant]
     Active Substance: BENZONATATE
     Indication: Cough
     Dosage: 100 MG, AS NECESSARY
     Route: 048
     Dates: start: 20210720

REACTIONS (4)
  - Skin lesion [Not Recovered/Not Resolved]
  - Rash [Recovering/Resolving]
  - Hyperglycaemia [Recovered/Resolved]
  - Acute kidney injury [Recovered/Resolved]

NARRATIVE: CASE EVENT DATE: 20230314
